FAERS Safety Report 12083600 (Version 1)
Quarter: 2016Q1

REPORT INFORMATION
  Report Type: Spontaneous
  Country: US (occurrence: None)
  Receive Date: 20160216
  Receipt Date: 20160216
  Transmission Date: 20160526
  Serious: No
  Sender: FDA-Public Use
  Company Number: None

PATIENT
  Age: 63 Year
  Sex: Female

DRUGS (4)
  1. FORTEO [Suspect]
     Active Substance: TERIPARATIDE
     Indication: OSTEOPOROSIS
     Route: 058
     Dates: start: 20140528
  2. LAMISIL [Concomitant]
     Active Substance: TERBINAFINE HYDROCHLORIDE
  3. MULTI 50+ [Concomitant]
  4. CELEBREX [Concomitant]
     Active Substance: CELECOXIB

REACTIONS (4)
  - Inflammation [None]
  - Osteoarthritis [None]
  - Hip arthroplasty [None]
  - Finger deformity [None]

NARRATIVE: CASE EVENT DATE: 201501
